FAERS Safety Report 11215536 (Version 2)
Quarter: 2015Q3

REPORT INFORMATION
  Report Type: Spontaneous
  Country: JP (occurrence: JP)
  Receive Date: 20150624
  Receipt Date: 20150804
  Transmission Date: 20151125
  Serious: Yes (Hospitalization)
  Sender: FDA-Public Use
  Company Number: JP-009507513-1506JPN007220

PATIENT
  Age: 58 Year
  Sex: Male

DRUGS (9)
  1. POLARAMINE [Concomitant]
     Active Substance: DEXCHLORPHENIRAMINE MALEATE
     Dosage: UNK
  2. SOLYUGEN F [Concomitant]
     Dosage: UNK
     Dates: start: 20150521, end: 20150521
  3. FOSAPREPITANT DIMEGLUMINE [Suspect]
     Active Substance: FOSAPREPITANT DIMEGLUMINE
     Dosage: 150 MG, ONCE
     Route: 041
     Dates: start: 20150521, end: 20150521
  4. SOLYUGEN F [Concomitant]
     Dosage: 100ML/HR
     Dates: start: 20150416
  5. SOLYUGEN F [Concomitant]
     Dosage: 500ML/HR
     Dates: start: 20150416, end: 20150416
  6. DEXART [Concomitant]
     Active Substance: DEXAMETHASONE SODIUM PHOSPHATE
     Dosage: UNK
     Dates: start: 20150521, end: 20150521
  7. FOSAPREPITANT DIMEGLUMINE [Suspect]
     Active Substance: FOSAPREPITANT DIMEGLUMINE
     Indication: PROPHYLAXIS OF NAUSEA AND VOMITING
     Dosage: 150 MG, ONCE
     Route: 041
     Dates: start: 20150416, end: 20150416
  8. DEXART [Concomitant]
     Active Substance: DEXAMETHASONE SODIUM PHOSPHATE
     Dosage: UNK
     Dates: start: 20150416, end: 20150416
  9. SOLYUGEN F [Concomitant]
     Dosage: 500 ML, UNK
     Dates: start: 20150521

REACTIONS (1)
  - Anaphylactic shock [Recovered/Resolved]

NARRATIVE: CASE EVENT DATE: 20150416
